FAERS Safety Report 14179314 (Version 1)
Quarter: 2017Q4

REPORT INFORMATION
  Report Type: Spontaneous
  Country: US (occurrence: US)
  Receive Date: 20171110
  Receipt Date: 20171110
  Transmission Date: 20180321
  Serious: No
  Sender: FDA-Public Use
  Company Number: US-BAYER-2017-216861

PATIENT
  Age: 64 Year
  Sex: Male

DRUGS (1)
  1. MAGNEVIST [Suspect]
     Active Substance: GADOPENTETATE DIMEGLUMINE
     Dosage: 50 MG, ONCE
     Dates: start: 20171107, end: 20171107

REACTIONS (6)
  - Skin discolouration [Not Recovered/Not Resolved]
  - Rash macular [Not Recovered/Not Resolved]
  - Contrast media allergy [Not Recovered/Not Resolved]
  - Erythema [Not Recovered/Not Resolved]
  - Oxygen saturation decreased [Not Recovered/Not Resolved]
  - Pruritus [Not Recovered/Not Resolved]

NARRATIVE: CASE EVENT DATE: 20171107
